FAERS Safety Report 6658851-9 (Version None)
Quarter: 2010Q1

REPORT INFORMATION
  Report Type: 
  Country: None (occurrence: None)
  Receive Date: 20100330
  Receipt Date: 20100311
  Transmission Date: 20100710
  Serious: No
  Sender: FDA-Public Use
  Company Number: US-BIOGENIDEC-2010BI008451

PATIENT
  Age: 49 Year
  Sex: Female

DRUGS (1)
  1. TYSABRI [Suspect]
     Indication: MULTIPLE SCLEROSIS
     Route: 042
     Dates: start: 20090505

REACTIONS (6)
  - ASTHENIA [None]
  - FALL [None]
  - HEAD INJURY [None]
  - LOSS OF CONTROL OF LEGS [None]
  - SWELLING FACE [None]
  - TOOTH FRACTURE [None]
